FAERS Safety Report 18957630 (Version 1)
Quarter: 2021Q1

REPORT INFORMATION
  Report Type: Spontaneous
  Country: US (occurrence: US)
  Receive Date: 20210302
  Receipt Date: 20210302
  Transmission Date: 20210420
  Serious: Yes (Other)
  Sender: FDA-Public Use
  Company Number: US-ALLERGAN-2015080US

PATIENT
  Sex: Female

DRUGS (2)
  1. ACTIQ [Concomitant]
     Active Substance: FENTANYL CITRATE
     Indication: PAIN
  2. NORCO [Suspect]
     Active Substance: ACETAMINOPHEN\HYDROCODONE BITARTRATE
     Indication: PAIN
     Dosage: UNK
     Route: 065

REACTIONS (4)
  - Thinking abnormal [Unknown]
  - Overdose [Unknown]
  - Drug dependence [Unknown]
  - Quality of life decreased [Unknown]
